FAERS Safety Report 25701420 (Version 2)
Quarter: 2025Q3

REPORT INFORMATION
  Report Type: Report from Study
  Country: ZA (occurrence: ZA)
  Receive Date: 20250819
  Receipt Date: 20250828
  Transmission Date: 20251021
  Serious: Yes (Other)
  Sender: ALEXION PHARMACEUTICALS
  Company Number: ZA-AstraZeneca-CH-00854664A

PATIENT
  Age: 70 Year
  Sex: Female

DRUGS (14)
  1. BUDESONIDE\FORMOTEROL [Suspect]
     Active Substance: BUDESONIDE\FORMOTEROL
     Indication: Asthma
  2. CHOLESTEROL [Suspect]
     Active Substance: CHOLESTEROL
     Route: 065
  3. Mezibe plus [Concomitant]
     Indication: Hyperlipidaemia
  4. GLUCOPHAGE [Concomitant]
     Active Substance: METFORMIN HYDROCHLORIDE
     Indication: Diabetes mellitus
  5. Peploc [Concomitant]
     Indication: Ulcer
  6. Betamox [Concomitant]
  7. VORTIOXETINE HYDROBROMIDE [Concomitant]
     Active Substance: VORTIOXETINE HYDROBROMIDE
     Indication: Depression
  8. Stilpane [Concomitant]
     Indication: Pain
     Route: 065
  9. ESCITALOPRAM OXALATE [Concomitant]
     Active Substance: ESCITALOPRAM OXALATE
     Indication: Depression
  10. ESCITALOPRAM [Concomitant]
     Active Substance: ESCITALOPRAM OXALATE
     Indication: Depression
  11. METFORMIN HYDROCHLORIDE [Concomitant]
     Active Substance: METFORMIN HYDROCHLORIDE
     Indication: Diabetes mellitus
  12. OMEPRAZOLE [Concomitant]
     Active Substance: OMEPRAZOLE
     Indication: Ulcer
  13. ERGOCALCIFEROL [Concomitant]
     Active Substance: ERGOCALCIFEROL
  14. Broncol [Concomitant]

REACTIONS (8)
  - Neoplasm malignant [Unknown]
  - Blood cholesterol abnormal [Unknown]
  - Product dispensing error [Unknown]
  - Decreased appetite [Unknown]
  - Weight decreased [Unknown]
  - Aggression [Unknown]
  - Personality change [Unknown]
  - Anxiety [Recovered/Resolved]
